FAERS Safety Report 8312131 (Version 2)
Quarter: 2013Q3

REPORT INFORMATION
  Report Type: Spontaneous
  Country: US (occurrence: US)
  Receive Date: 20111227
  Receipt Date: 20130719
  Transmission Date: 20140515
  Serious: Yes (Hospitalization, Other)
  Sender: FDA-Public Use
  Company Number: US-ROCHE-791092

PATIENT
  Age: 20 Year
  Sex: Male
  Weight: 63.56 kg

DRUGS (1)
  1. ACCUTANE [Suspect]
     Indication: ACNE
     Dosage: 40 MG ON ODD AND 80 MG ON EVEN DAYS
     Route: 065
     Dates: start: 2001, end: 2002

REACTIONS (14)
  - Proctitis [Unknown]
  - Colitis [Unknown]
  - Anxiety [Unknown]
  - Colitis ulcerative [Unknown]
  - Inflammatory bowel disease [Unknown]
  - Depression [Unknown]
  - Irritable bowel syndrome [Unknown]
  - Acne [Unknown]
  - Chapped lips [Unknown]
  - Dry skin [Unknown]
  - Blood triglycerides increased [Unknown]
  - Hyperhidrosis [Unknown]
  - Epistaxis [Unknown]
  - Pruritus genital [Unknown]
